FAERS Safety Report 21582828 (Version 1)
Quarter: 2022Q4

REPORT INFORMATION
  Report Type: Spontaneous
  Country: US (occurrence: US)
  Receive Date: 20221111
  Receipt Date: 20221111
  Transmission Date: 20230113
  Serious: No
  Sender: FDA-Public Use
  Company Number: US-CELGENE-USA-20200310606

PATIENT
  Age: 10 Decade
  Sex: Female

DRUGS (7)
  1. REVLIMID [Suspect]
     Active Substance: LENALIDOMIDE
     Indication: Plasma cell myeloma
     Dosage: 10 MILLIGRAM DAILY 1-21 DAYS
     Route: 048
     Dates: start: 20181003
  2. REVLIMID [Suspect]
     Active Substance: LENALIDOMIDE
     Dosage: 5 MILLIGRAM
     Route: 048
     Dates: start: 201811
  3. REVLIMID [Suspect]
     Active Substance: LENALIDOMIDE
     Dosage: 10-15MG
     Route: 048
     Dates: start: 201905
  4. REVLIMID [Suspect]
     Active Substance: LENALIDOMIDE
     Dosage: 5 MILLIGRAM
     Route: 048
     Dates: start: 201908
  5. REVLIMID [Suspect]
     Active Substance: LENALIDOMIDE
     Dosage: 5 MILLIGRAM
     Route: 048
     Dates: start: 2020
  6. REVLIMID [Suspect]
     Active Substance: LENALIDOMIDE
     Dosage: 5 MILLIGRAM
     Route: 048
     Dates: start: 20180928, end: 20211221
  7. LOVENOX [Concomitant]
     Active Substance: ENOXAPARIN SODIUM
     Indication: Deep vein thrombosis
     Route: 058
     Dates: start: 202105, end: 202112

REACTIONS (5)
  - Exposure to SARS-CoV-2 [Unknown]
  - Decreased appetite [Recovered/Resolved]
  - Weight decreased [Recovered/Resolved]
  - Eating disorder [Unknown]
  - Taste disorder [Unknown]

NARRATIVE: CASE EVENT DATE: 20191220
